FAERS Safety Report 7270734-2 (Version None)
Quarter: 2011Q1

REPORT INFORMATION
  Report Type: 
  Country: None (occurrence: None)
  Receive Date: 20110202
  Receipt Date: 20110202
  Transmission Date: 20110831
  Serious: Yes (Hospitalization)
  Sender: FDA-Public Use
  Company Number: D0069738A

PATIENT
  Sex: Male

DRUGS (6)
  1. HUMALOG [Concomitant]
     Indication: DIABETES MELLITUS
     Route: 058
  2. VOTRIENT [Suspect]
     Indication: RENAL CELL CARCINOMA
     Dosage: 800MG PER DAY
     Route: 048
     Dates: start: 20100101
  3. NEXIUM [Concomitant]
     Dosage: 20MG PER DAY
     Route: 065
  4. INSUMAN BASAL [Concomitant]
     Indication: DIABETES MELLITUS
     Route: 058
  5. PALLADONE [Concomitant]
     Indication: PAIN
     Dosage: 16MG TWICE PER DAY
     Route: 065
  6. BISOPROLOL [Concomitant]
     Dosage: 5MG PER DAY
     Route: 048

REACTIONS (2)
  - CONVULSION [None]
  - POSTICTAL PARALYSIS [None]
